FAERS Safety Report 13329909 (Version 1)
Quarter: 2017Q1

REPORT INFORMATION
  Report Type: Spontaneous
  Country: SE (occurrence: SE)
  Receive Date: 20170313
  Receipt Date: 20170313
  Transmission Date: 20170428
  Serious: Yes (Other)
  Sender: FDA-Public Use
  Company Number: PHHY2016SE156935

PATIENT

DRUGS (2)
  1. TAFINLAR [Suspect]
     Active Substance: DABRAFENIB MESYLATE
     Indication: LUNG ADENOCARCINOMA
     Dosage: UNK
     Route: 065
     Dates: start: 20160516, end: 20161017
  2. MEKINIST [Suspect]
     Active Substance: TRAMETINIB DIMETHYL SULFOXIDE
     Indication: LUNG ADENOCARCINOMA
     Dosage: UNK
     Route: 065
     Dates: start: 20160706, end: 20161017

REACTIONS (11)
  - Product use issue [Unknown]
  - Gastrointestinal wall thickening [Unknown]
  - Bladder wall calcification [Unknown]
  - Metastases to meninges [Unknown]
  - Skin irritation [Unknown]
  - Hydronephrosis [Unknown]
  - Anal incontinence [Unknown]
  - Colitis [Unknown]
  - Anorectal discomfort [Unknown]
  - Swelling [Unknown]
  - Constipation [Unknown]

NARRATIVE: CASE EVENT DATE: 20161013
